FAERS Safety Report 7064482-1 (Version None)
Quarter: 2010Q4

REPORT INFORMATION
  Report Type: 
  Country: None (occurrence: None)
  Receive Date: 20101027
  Receipt Date: 20101020
  Transmission Date: 20110411
  Serious: Yes (Other)
  Sender: FDA-Public Use
  Company Number: CA-PFIZER INC-2010133819

PATIENT
  Age: 44 Year
  Sex: Female

DRUGS (1)
  1. CHAMPIX [Suspect]
     Indication: SMOKING CESSATION THERAPY
     Dosage: 0.5 MG, 1X/DAY
     Dates: start: 20100928

REACTIONS (7)
  - ABNORMAL DREAMS [None]
  - CLAUSTROPHOBIA [None]
  - DEPRESSION [None]
  - INSOMNIA [None]
  - MOOD SWINGS [None]
  - PERSONALITY CHANGE [None]
  - THINKING ABNORMAL [None]
